FAERS Safety Report 11012157 (Version 1)
Quarter: 2015Q2

REPORT INFORMATION
  Report Type: Spontaneous
  Country: US (occurrence: US)
  Receive Date: 20150411
  Receipt Date: 20150411
  Transmission Date: 20150821
  Serious: No
  Sender: FDA-Public Use
  Company Number: US-ASTRAZENECA-2015SE31049

PATIENT
  Sex: Female

DRUGS (3)
  1. ANTICOAGULANT PILL [Concomitant]
  2. UKNOWN [Concomitant]
  3. BYDUREON [Suspect]
     Active Substance: EXENATIDE
     Route: 058

REACTIONS (4)
  - Injection site pain [Unknown]
  - Injection site nodule [Unknown]
  - Drug dose omission [Unknown]
  - Injection site haemorrhage [Unknown]

NARRATIVE: CASE EVENT DATE: 201503
